FAERS Safety Report 16746025 (Version 1)
Quarter: 2019Q3

REPORT INFORMATION
  Report Type: Spontaneous
  Country: PR (occurrence: PR)
  Receive Date: 20190827
  Receipt Date: 20190827
  Transmission Date: 20191005
  Serious: No
  Sender: FDA-Public Use
  Company Number: PR-ABBVIE-19K-131-2711869-00

PATIENT
  Age: 60 Year
  Sex: Male

DRUGS (1)
  1. MAVYRET [Suspect]
     Active Substance: GLECAPREVIR\PIBRENTASVIR
     Indication: CHILD-PUGH-TURCOTTE SCORE
     Route: 048

REACTIONS (2)
  - Child-Pugh-Turcotte score increased [Unknown]
  - Blood bilirubin increased [Unknown]
